FAERS Safety Report 5740721-1 (Version None)
Quarter: 2008Q2

REPORT INFORMATION
  Report Type: 
  Country: None (occurrence: None)
  Receive Date: 20080516
  Receipt Date: 20080512
  Transmission Date: 20081010
  Serious: No
  Sender: FDA-Public Use
  Company Number: US-BAXTER-2008BH004635

PATIENT
  Age: 33 Year
  Sex: Female
  Weight: 58 kg

DRUGS (12)
  1. HEPARIN SODIUM 5,000 UNITS IN DEXTROSE 5% [Suspect]
     Indication: PULMONARY EMBOLISM
     Dosage: DOSE UNIT:UNKNOWN
     Route: 041
     Dates: start: 20080129
  2. HEPARIN [Concomitant]
     Indication: CYSTITIS INTERSTITIAL
     Route: 043
     Dates: start: 20070401, end: 20080201
  3. PHENERGAN [Concomitant]
     Indication: DRUG USE FOR UNKNOWN INDICATION
     Route: 065
  4. COUMADIN [Concomitant]
     Indication: DRUG USE FOR UNKNOWN INDICATION
     Route: 065
  5. LYRICA [Concomitant]
     Indication: DRUG USE FOR UNKNOWN INDICATION
     Route: 065
  6. PYRIDIUM [Concomitant]
     Indication: DRUG USE FOR UNKNOWN INDICATION
     Route: 065
  7. OXYCONTIN [Concomitant]
     Indication: DRUG USE FOR UNKNOWN INDICATION
     Route: 065
  8. VALIUM [Concomitant]
     Indication: MUSCLE RELAXANT THERAPY
     Route: 065
  9. PRELISE [Concomitant]
     Indication: MEDICAL DIET
     Route: 065
  10. ATARAX [Concomitant]
     Indication: DRUG USE FOR UNKNOWN INDICATION
     Route: 065
  11. MACROBID [Concomitant]
     Indication: PROPHYLAXIS
     Route: 065
  12. BENTYL [Concomitant]
     Indication: DRUG USE FOR UNKNOWN INDICATION
     Route: 065

REACTIONS (3)
  - PLATELET COUNT DECREASED [None]
  - PYREXIA [None]
  - WHITE BLOOD CELL COUNT DECREASED [None]
